FAERS Safety Report 6695787-1 (Version None)
Quarter: 2010Q2

REPORT INFORMATION
  Report Type: 
  Country: None (occurrence: None)
  Receive Date: 20100426
  Receipt Date: 20100420
  Transmission Date: 20101027
  Serious: Yes (Other)
  Sender: FDA-Public Use
  Company Number: US-BAYER-200942612NA

PATIENT
  Age: 59 Year
  Sex: Female

DRUGS (10)
  1. BETASERON [Suspect]
     Indication: MULTIPLE SCLEROSIS
     Dosage: AS USED: 4 MIU
     Route: 058
     Dates: end: 20100107
  2. BETASERON [Suspect]
     Dosage: TOTAL DAILY DOSE: 2 MIU
     Route: 058
     Dates: start: 20091201
  3. BETASERON [Suspect]
     Route: 058
     Dates: start: 20091107, end: 20091119
  4. TOPAMAX [Concomitant]
     Dosage: TOTAL DAILY DOSE: 300 MG
  5. TOPAMAX [Concomitant]
     Dosage: TOTAL DAILY DOSE: 200 MG
  6. LORAZEPAM [Concomitant]
  7. BUTALBITAL [Concomitant]
     Indication: HEADACHE
     Dates: end: 20091219
  8. AMARIPOLZE [Concomitant]
     Indication: ABDOMINAL PAIN UPPER
  9. CYMBALTA [Concomitant]
     Indication: DEPRESSION
  10. SEIZURE MEDICATION [Concomitant]
     Indication: CONVULSION

REACTIONS (12)
  - ABDOMINAL PAIN UPPER [None]
  - ANXIETY [None]
  - CONVULSION [None]
  - FATIGUE [None]
  - GRAND MAL CONVULSION [None]
  - HEADACHE [None]
  - HYPERSOMNIA [None]
  - LOSS OF CONSCIOUSNESS [None]
  - PROTEIN URINE PRESENT [None]
  - PRURITUS GENERALISED [None]
  - SUICIDAL IDEATION [None]
  - WEIGHT DECREASED [None]
